FAERS Safety Report 24195061 (Version 1)
Quarter: 2024Q3

REPORT INFORMATION
  Report Type: Spontaneous
  Country: CN (occurrence: CN)
  Receive Date: 20240809
  Receipt Date: 20240809
  Transmission Date: 20241017
  Serious: Yes (Hospitalization, Other)
  Sender: MEITHEAL PHARMACEUTICALS
  Company Number: CN-MEITHEAL-2024MPLIT00236

PATIENT
  Age: 71 Year
  Sex: Male

DRUGS (11)
  1. ETOPOSIDE [Suspect]
     Active Substance: ETOPOSIDE
     Indication: Peripheral T-cell lymphoma unspecified stage III
     Dosage: D1 TO 3
     Route: 041
     Dates: start: 202302, end: 202302
  2. ETOPOSIDE [Suspect]
     Active Substance: ETOPOSIDE
     Dosage: COMBINED WITH CHIDAMIDE
     Route: 041
     Dates: start: 202303
  3. CYCLOPHOSPHAMIDE [Suspect]
     Active Substance: CYCLOPHOSPHAMIDE
     Indication: Peripheral T-cell lymphoma unspecified stage III
     Dosage: D1
     Route: 041
     Dates: end: 202302
  4. CYCLOPHOSPHAMIDE [Suspect]
     Active Substance: CYCLOPHOSPHAMIDE
     Dosage: COMBINED WITH CHIDAMIDE
     Route: 041
     Dates: start: 202303
  5. DOXORUBICIN HYDROCHLORIDE [Suspect]
     Active Substance: DOXORUBICIN HYDROCHLORIDE
     Indication: Peripheral T-cell lymphoma unspecified stage III
     Dosage: D1
     Route: 041
     Dates: start: 202302, end: 202302
  6. DOXORUBICIN HYDROCHLORIDE [Suspect]
     Active Substance: DOXORUBICIN HYDROCHLORIDE
     Route: 041
     Dates: start: 202303
  7. VINCRISTINE [Suspect]
     Active Substance: VINCRISTINE
     Indication: Peripheral T-cell lymphoma unspecified stage III
     Dosage: D1
     Route: 041
     Dates: start: 202302, end: 202302
  8. VINCRISTINE [Suspect]
     Active Substance: VINCRISTINE
     Dosage: COMBINED WITH CHIDAMIDE
     Route: 041
     Dates: start: 202303
  9. PREDNISONE [Suspect]
     Active Substance: PREDNISONE
     Indication: Peripheral T-cell lymphoma unspecified stage III
     Dosage: D1 TO 5
     Route: 065
     Dates: start: 202302, end: 202302
  10. PREDNISONE [Suspect]
     Active Substance: PREDNISONE
     Dosage: COMBINED WITH CHIDAMIDE
     Route: 065
     Dates: start: 202303
  11. TUCIDINOSTAT [Concomitant]
     Active Substance: TUCIDINOSTAT
     Route: 048

REACTIONS (3)
  - Cardiac failure [Recovered/Resolved]
  - Acute kidney injury [Recovered/Resolved]
  - Drug intolerance [Recovered/Resolved]
